FAERS Safety Report 4721378-5 (Version None)
Quarter: 2005Q3

REPORT INFORMATION
  Report Type: 
  Country: None (occurrence: None)
  Receive Date: 20050721
  Receipt Date: 20040726
  Transmission Date: 20060218
  Serious: No
  Sender: FDA-Public Use
  Company Number: US-BRISTOL-MYERS SQUIBB COMPANY-12652533

PATIENT
  Sex: Female

DRUGS (2)
  1. COUMADIN [Suspect]
     Dosage: DURATION: ^FOR YEARS^
     Route: 048
  2. ANTIBIOTIC [Concomitant]
     Indication: INFECTION

REACTIONS (1)
  - INTERNATIONAL NORMALISED RATIO DECREASED [None]
